FAERS Safety Report 16757742 (Version 5)
Quarter: 2019Q4

REPORT INFORMATION
  Report Type: Spontaneous
  Country: IT (occurrence: IT)
  Receive Date: 20190830
  Receipt Date: 20191224
  Transmission Date: 20200122
  Serious: Yes (Other)
  Sender: FDA-Public Use
  Company Number: IT-AUROBINDO-AUR-APL-2019-056867

PATIENT
  Age: 46 Year
  Sex: Female

DRUGS (9)
  1. ICLUSIG [Interacting]
     Active Substance: PONATINIB
     Dosage: 15 MILLIGRAM, ONCE A DAY
     Route: 065
     Dates: start: 201612
  2. THYROXINE [Concomitant]
     Active Substance: LEVOTHYROXINE
     Indication: HORMONE REPLACEMENT THERAPY
     Dosage: UNK
     Route: 065
  3. VORICONAZOLE. [Suspect]
     Active Substance: VORICONAZOLE
     Indication: BRONCHOPULMONARY ASPERGILLOSIS
     Dosage: 100 MILLIGRAM
     Route: 065
     Dates: start: 201612
  4. VORICONAZOLE. [Interacting]
     Active Substance: VORICONAZOLE
     Dosage: UNK
     Route: 065
     Dates: start: 201612
  5. ICLUSIG [Interacting]
     Active Substance: PONATINIB
     Indication: PHILADELPHIA CHROMOSOME POSITIVE
     Dosage: 30 MILLIGRAM, ONCE A DAY
     Route: 065
  6. VORICONAZOLE. [Interacting]
     Active Substance: VORICONAZOLE
     Dosage: (TAKING VORICONAZOLE OVER THE LAST 5 MONTHS)UNK
     Route: 065
  7. ICLUSIG [Interacting]
     Active Substance: PONATINIB
     Dosage: 60 MILLIGRAM, ONCE A DAY
     Route: 065
     Dates: start: 201612
  8. ICLUSIG [Interacting]
     Active Substance: PONATINIB
     Dosage: 45 MILLIGRAM, ONCE A DAY
     Route: 065
     Dates: start: 201612
  9. ICLUSIG [Interacting]
     Active Substance: PONATINIB
     Indication: ACUTE LYMPHOCYTIC LEUKAEMIA
     Dosage: UNK
     Route: 065

REACTIONS (8)
  - Psychotic disorder [Unknown]
  - Toxicity to various agents [Unknown]
  - Drug interaction [Unknown]
  - Drug level increased [Unknown]
  - Atrial fibrillation [Recovered/Resolved]
  - Insomnia [Unknown]
  - Neuropathy peripheral [Unknown]
  - Hallucination [Unknown]

NARRATIVE: CASE EVENT DATE: 201712
